FAERS Safety Report 8808449 (Version 1)
Quarter: 2012Q4

REPORT INFORMATION
  Report Type: 
  Country: US (occurrence: US)
  Receive Date: 20120926
  Receipt Date: 20120926
  Transmission Date: 20130627
  Serious: No
  Sender: FDA-Public Use
  Company Number: US-PFIZER INC-2012236670

PATIENT
  Age: 70 Year
  Sex: Female
  Weight: 77.1 kg

DRUGS (3)
  1. EFFEXOR XR [Suspect]
     Indication: PANIC ATTACK
     Dosage: 225 mg, daily (in morning)
     Route: 048
     Dates: start: 2001
  2. LIPITOR [Suspect]
     Indication: BLOOD CHOLESTEROL INCREASED
     Dosage: UNK
     Dates: start: 2002
  3. SIMVASTATIN [Suspect]
     Indication: BLOOD CHOLESTEROL INCREASED
     Dosage: UNK, daily (at night)

REACTIONS (2)
  - Neuropathy peripheral [Not Recovered/Not Resolved]
  - Blood cholesterol increased [Unknown]
